FAERS Safety Report 9001187 (Version 1)
Quarter: 2013Q1

REPORT INFORMATION
  Report Type: Spontaneous
  Country: US (occurrence: US)
  Receive Date: 20130107
  Receipt Date: 20130107
  Transmission Date: 20140127
  Serious: Yes (Other)
  Sender: FDA-Public Use
  Company Number: US-ELI_LILLY_AND_COMPANY-US201301000118

PATIENT
  Age: 71 Year
  Sex: Male

DRUGS (2)
  1. FORTEO [Suspect]
     Indication: OSTEOPOROSIS
     Dosage: UNK, QD
     Dates: start: 200301, end: 200412
  2. FORTEO [Suspect]
     Dosage: UNK, QD
     Dates: start: 20121116

REACTIONS (2)
  - Stress fracture [Unknown]
  - Incorrect drug administration duration [Unknown]
